FAERS Safety Report 8054118-5 (Version None)
Quarter: 2012Q1

REPORT INFORMATION
  Report Type: 
  Country: None (occurrence: None)
  Receive Date: 20120118
  Receipt Date: 20120116
  Transmission Date: 20120608
  Serious: Yes (Other)
  Sender: FDA-Public Use
  Company Number: CN-ROXANE LABORATORIES, INC.-2012-RO-00480RO

PATIENT
  Age: 41 Year
  Sex: Female

DRUGS (3)
  1. PRANOPROFEN [Suspect]
  2. DEXAMETHASONE TAB [Suspect]
     Indication: SCLERAL DISORDER
     Route: 061
  3. BIMATOPROST [Suspect]
     Indication: INTRAOCULAR PRESSURE INCREASED
     Route: 031

REACTIONS (3)
  - CATARACT [None]
  - HYPERSENSITIVITY [None]
  - INTRAOCULAR PRESSURE INCREASED [None]
